FAERS Safety Report 19893272 (Version 1)
Quarter: 2021Q3

REPORT INFORMATION
  Report Type: Spontaneous
  Country: US (occurrence: US)
  Receive Date: 20210928
  Receipt Date: 20210928
  Transmission Date: 20211014
  Serious: No
  Sender: FDA-Public Use
  Company Number: US-SA-2021SA315116

PATIENT
  Sex: Male

DRUGS (1)
  1. DUPIXENT [Suspect]
     Active Substance: DUPILUMAB
     Indication: DERMATITIS ATOPIC
     Dosage: 1 DF, QOW (1 SYRINGE UNDER THE SKIN)
     Route: 058
     Dates: start: 201909

REACTIONS (3)
  - Ocular hyperaemia [Unknown]
  - Conjunctivitis [Recovering/Resolving]
  - Dry eye [Unknown]
